FAERS Safety Report 5611361-X (Version None)
Quarter: 2008Q1

REPORT INFORMATION
  Report Type: 
  Country: None (occurrence: None)
  Receive Date: 20080201
  Receipt Date: 20080122
  Transmission Date: 20080703
  Serious: Yes (Hospitalization, Other)
  Sender: FDA-Public Use
  Company Number: US-PFIZER INC-2008006569

PATIENT
  Age: 51 Year
  Sex: Male

DRUGS (5)
  1. SERTRALINE [Suspect]
     Indication: BIPOLAR DISORDER
     Dosage: DAILY DOSE:75MG
  2. INTERFERON ALFA [Suspect]
     Indication: HEPATITIS C VIRUS
     Dates: start: 20020601
  3. RIBAVIRIN [Suspect]
     Indication: HEPATITIS C VIRUS
  4. LEVOTHYROXINE SODIUM [Concomitant]
     Indication: BIPOLAR DISORDER
     Dosage: DAILY DOSE:.075MG
  5. LITHIUM CARBONATE [Concomitant]
     Indication: BIPOLAR DISORDER
     Dosage: DAILY DOSE:1200MG

REACTIONS (6)
  - AFFECTIVE DISORDER [None]
  - DEPRESSIVE SYMPTOM [None]
  - DRUG INEFFECTIVE [None]
  - HYPOMANIA [None]
  - PSYCHOMOTOR RETARDATION [None]
  - SUICIDAL IDEATION [None]
